FAERS Safety Report 8108311-3 (Version None)
Quarter: 2012Q1

REPORT INFORMATION
  Report Type: 
  Country: None (occurrence: None)
  Receive Date: 20120202
  Receipt Date: 20120124
  Transmission Date: 20120608
  Serious: Yes (Other)
  Sender: FDA-Public Use
  Company Number: PHEH2012US002049

PATIENT
  Age: 70 Year
  Sex: Female

DRUGS (2)
  1. VALTURNA [Suspect]
     Dosage: 150/160 MG ONCE A DAY
  2. AMOXICILLIN [Concomitant]
     Dosage: 500 MG, UNK

REACTIONS (5)
  - OEDEMA PERIPHERAL [None]
  - HYPOPHAGIA [None]
  - LYMPHOEDEMA [None]
  - CELLULITIS [None]
  - ABDOMINAL DISTENSION [None]
